FAERS Safety Report 18635417 (Version 1)
Quarter: 2020Q4

REPORT INFORMATION
  Report Type: Spontaneous
  Country: US (occurrence: US)
  Receive Date: 20201218
  Receipt Date: 20201218
  Transmission Date: 20210114
  Serious: No
  Sender: FDA-Public Use
  Company Number: US-THERAPEUTICSMD-2020TMD04614

PATIENT
  Age: 66 Year
  Sex: Female
  Weight: 49.89 kg

DRUGS (4)
  1. IMVEXXY [Suspect]
     Active Substance: ESTRADIOL
     Dosage: 4 ?G, 1X/WEEK
     Route: 067
     Dates: start: 20200220
  2. PROGESTERONE. [Concomitant]
     Active Substance: PROGESTERONE
     Route: 048
  3. IMVEXXY [Suspect]
     Active Substance: ESTRADIOL
     Indication: CERVIX DISORDER
     Dosage: 4 ?G, 1X/DAY
     Route: 067
     Dates: start: 20200206, end: 20200219
  4. ESTROGEN PATCH [Concomitant]
     Active Substance: ESTRADIOL
     Dosage: UNK, 1X/WEEK

REACTIONS (6)
  - Agitation [Recovered/Resolved]
  - Nocturia [Recovered/Resolved]
  - Treatment noncompliance [Not Recovered/Not Resolved]
  - Muscle spasms [Recovered/Resolved]
  - Palpitations [Recovered/Resolved]
  - Off label use [Not Recovered/Not Resolved]

NARRATIVE: CASE EVENT DATE: 2020
